FAERS Safety Report 24359015 (Version 2)
Quarter: 2024Q4

REPORT INFORMATION
  Report Type: Spontaneous
  Country: US (occurrence: US)
  Receive Date: 20240924
  Receipt Date: 20241009
  Transmission Date: 20250115
  Serious: No
  Sender: INCYTE
  Company Number: US-INCYTE CORPORATION-2024IN009673

PATIENT

DRUGS (2)
  1. OPZELURA [Suspect]
     Active Substance: RUXOLITINIB PHOSPHATE
     Dosage: UNK, BID
     Route: 061
     Dates: start: 20231001
  2. OPZELURA [Suspect]
     Active Substance: RUXOLITINIB PHOSPHATE
     Dosage: APPLY A THIN LAYER TO AFFECTED AREA(S) TWICE DAILY AS DIRECTED. FOLLOW WITH MOISTURIZER
     Route: 061
     Dates: start: 20231101

REACTIONS (2)
  - Condition aggravated [Unknown]
  - Drug ineffective [Unknown]
